FAERS Safety Report 8415745-6 (Version None)
Quarter: 2012Q2

REPORT INFORMATION
  Report Type: 
  Country: None (occurrence: None)
  Receive Date: 20120606
  Receipt Date: 20120525
  Transmission Date: 20120825
  Serious: No
  Sender: FDA-Public Use
  Company Number: US-B.I. PHARMACEUTICALS,INC./RIDGEFIELD-2012-BP-12440BP

PATIENT
  Sex: Female

DRUGS (12)
  1. OXYBUTYNIN [Concomitant]
     Indication: BACK PAIN
     Dosage: 5 MG
  2. ALPRAZOLAM [Concomitant]
     Indication: ANXIETY
  3. PREMARIN [Concomitant]
  4. OXYCODONE HYDROCHLORIDE [Concomitant]
     Indication: BACK PAIN
  5. DIPHENOXYLATE AND ATROPINE [Concomitant]
     Indication: DIARRHOEA
  6. SPIRIVA [Suspect]
     Indication: CHRONIC OBSTRUCTIVE PULMONARY DISEASE
     Dosage: 18 MCG
     Route: 055
     Dates: start: 20101001
  7. SIMVASTATIN [Concomitant]
     Indication: BLOOD CHOLESTEROL INCREASED
  8. FIORINAL [Concomitant]
     Indication: MIGRAINE
  9. LISINOPRIL [Concomitant]
     Indication: HYPERTENSION
  10. ADVAIR DISKUS 100/50 [Concomitant]
     Indication: CHRONIC OBSTRUCTIVE PULMONARY DISEASE
  11. GABAPENTIN [Concomitant]
     Indication: PAIN IN EXTREMITY
  12. COLESTIPOL HYDROCHLORIDE [Concomitant]

REACTIONS (1)
  - BACK PAIN [None]
